FAERS Safety Report 14632829 (Version 1)
Quarter: 2018Q1

REPORT INFORMATION
  Report Type: Spontaneous
  Country: ES (occurrence: ES)
  Receive Date: 20180313
  Receipt Date: 20180313
  Transmission Date: 20180509
  Serious: Yes (Death, Hospitalization)
  Sender: FDA-Public Use
  Company Number: ES-TEVA-2018-ES-866778

PATIENT
  Age: 84 Year
  Sex: Male

DRUGS (10)
  1. ENALAPRIL/HYDROCHLOROTHIAZIDE [Interacting]
     Active Substance: ENALAPRIL MALEATE\HYDROCHLOROTHIAZIDE
     Indication: HYPERTENSION
     Route: 048
     Dates: start: 20141213, end: 20160523
  2. ATORVASTATINA (7400A) [Concomitant]
     Active Substance: ATORVASTATIN
     Indication: HYPERCHOLESTEROLAEMIA
     Route: 048
     Dates: start: 20120608, end: 20180112
  3. HYDREA 500 MG CAPSULAS DURAS, 20 CAPSULES [Concomitant]
     Indication: THROMBOCYTOSIS
     Route: 048
     Dates: start: 20131010, end: 20180112
  4. SPIRIVA 18 MCG, POLVO PARA INHALACION , 1 INHALADOR + 30 C?PSULAS [Concomitant]
     Indication: CHRONIC OBSTRUCTIVE PULMONARY DISEASE
     Route: 055
     Dates: start: 20120229, end: 20180112
  5. LEVOFLOXACINO (2791A) [Concomitant]
     Active Substance: LEVOFLOXACIN
     Indication: CHRONIC OBSTRUCTIVE PULMONARY DISEASE
     Route: 048
     Dates: start: 20160517, end: 20160524
  6. ACETILSALICILICO ACIDO (176A) [Concomitant]
     Active Substance: ASPIRIN
     Indication: ISCHAEMIC HEART DISEASE PROPHYLAXIS
     Route: 048
     Dates: start: 20120608, end: 20180112
  7. AMLODIPINE (2503A) [Suspect]
     Active Substance: AMLODIPINE BESYLATE
     Indication: HYPERTENSION
     Route: 048
     Dates: start: 20120412, end: 20160523
  8. FUROSEMIDA (1615A) [Interacting]
     Active Substance: FUROSEMIDE
     Route: 048
     Dates: start: 20160517, end: 20160530
  9. OMEPRAZOL (2141A) [Concomitant]
     Active Substance: OMEPRAZOLE
     Indication: PROPHYLAXIS AGAINST GASTROINTESTINAL ULCER
     Route: 048
     Dates: start: 20120608, end: 20180112
  10. PLUSVENT ACCUHALER 50 MCG/250 MCG /POWDER FOR INHALATION , 1 INHALADOR [Concomitant]
     Indication: CHRONIC OBSTRUCTIVE PULMONARY DISEASE
     Route: 055
     Dates: start: 20120229, end: 20180112

REACTIONS (3)
  - Syncope [Recovered/Resolved]
  - Drug interaction [Unknown]
  - Hypotension [Recovered/Resolved]

NARRATIVE: CASE EVENT DATE: 20160521
